FAERS Safety Report 6668180-5 (Version None)
Quarter: 2010Q2

REPORT INFORMATION
  Report Type: 
  Country: None (occurrence: None)
  Receive Date: 20100406
  Receipt Date: 20100331
  Transmission Date: 20101027
  Serious: Yes (Hospitalization, Other)
  Sender: FDA-Public Use
  Company Number: US-ELI_LILLY_AND_COMPANY-US201004000348

PATIENT
  Age: 55 Year
  Sex: Female

DRUGS (18)
  1. HUMALOG [Suspect]
     Indication: DIABETES MELLITUS
     Dosage: 16 U, EACH MORNING
     Dates: start: 20050101
  2. HUMALOG [Suspect]
     Dosage: 20 U, OTHER
     Dates: start: 20050101
  3. HUMALOG [Suspect]
     Dosage: 20 U, EACH EVENING
     Dates: start: 20050101
  4. HUMALOG [Suspect]
     Dosage: 16 U, EACH MORNING
  5. HUMALOG [Suspect]
     Dosage: 18 U, OTHER
  6. HUMALOG [Suspect]
     Dosage: 18 U, EACH EVENING
  7. HUMULIN 70/30 [Suspect]
     Indication: DIABETES MELLITUS
     Dates: start: 19850101, end: 20020101
  8. LANTUS [Concomitant]
  9. PLAVIX [Concomitant]
  10. TRIMETRIN [Concomitant]
  11. SIMVASTATIN [Concomitant]
  12. VITAMIN B-12 [Concomitant]
  13. CALCIUM [Concomitant]
  14. VALIUM [Concomitant]
     Dosage: 5 MG, UNK
  15. KLOR-CON M20 [Concomitant]
  16. OMEPRAZOLE [Concomitant]
     Dosage: 40 MG, UNK
  17. FEXOFENADINE [Concomitant]
     Dosage: 180 MG, UNK
  18. LORA TAB [Concomitant]

REACTIONS (6)
  - BLOOD GLUCOSE INCREASED [None]
  - CATARACT [None]
  - CORONARY ARTERY BYPASS [None]
  - FOOT OPERATION [None]
  - KNEE OPERATION [None]
  - SPINAL OPERATION [None]
